FAERS Safety Report 17300834 (Version 2)
Quarter: 2020Q1

REPORT INFORMATION
  Report Type: Spontaneous
  Country: CA (occurrence: CA)
  Receive Date: 20200122
  Receipt Date: 20200127
  Transmission Date: 20200409
  Serious: Yes (Other)
  Sender: FDA-Public Use
  Company Number: CA-INCYTE CORPORATION-2020IN000625

PATIENT

DRUGS (2)
  1. JAKAVI [Suspect]
     Active Substance: RUXOLITINIB
     Indication: MYELOFIBROSIS
     Dosage: 20 MG, BID
     Route: 065
  2. HYDROXYUREA. [Concomitant]
     Active Substance: HYDROXYUREA
     Indication: PRODUCT USED FOR UNKNOWN INDICATION
     Dosage: 1 G, BID
     Route: 065

REACTIONS (9)
  - Herpes simplex [Unknown]
  - Lymphocytosis [Unknown]
  - Oral herpes [Unknown]
  - Sinusitis [Unknown]
  - Herpes zoster disseminated [Unknown]
  - Pneumonia respiratory syncytial viral [Unknown]
  - Epstein-Barr virus infection [Unknown]
  - Lymphadenopathy [Unknown]
  - Pneumonia [Unknown]
